FAERS Safety Report 9616885 (Version 5)
Quarter: 2013Q4

REPORT INFORMATION
  Report Type: Report from Study
  Country: GB (occurrence: GB)
  Receive Date: 20131011
  Receipt Date: 20131125
  Transmission Date: 20140711
  Serious: Yes (Other)
  Sender: FDA-Public Use
  Company Number: GB-VERTEX PHARMACEUTICALS INC-2013-010331

PATIENT
  Age: 61 Year
  Sex: Male

DRUGS (6)
  1. VX-950 (TELAPREVIR) [Suspect]
     Indication: HEPATITIS C
     Dosage: 750 MG, TID
     Route: 048
     Dates: start: 20130308, end: 20130531
  2. AUGMENTIN [Suspect]
     Indication: DIABETIC FOOT
     Dosage: DOSAGE FORM: UNSPECIFIED
     Route: 048
     Dates: end: 20130925
  3. RIBAVIRIN [Suspect]
     Indication: HEPATITIS C
     Dosage: UNK, BID
     Route: 048
     Dates: start: 20130308
  4. RIBAVIRIN [Suspect]
     Dosage: DOSAGE FORM: TABLET
  5. PEGYLATED INTERFERON [Suspect]
     Indication: HEPATITIS C
     Dosage: UNK, QW
     Route: 058
     Dates: start: 20130308
  6. AMOXICILLIN [Concomitant]
     Indication: LOCALISED INFECTION
     Dates: end: 201310

REACTIONS (9)
  - Depression [Not Recovered/Not Resolved]
  - Contusion [Not Recovered/Not Resolved]
  - Mood swings [Not Recovered/Not Resolved]
  - Neuralgia [Not Recovered/Not Resolved]
  - Epigastric discomfort [Not Recovered/Not Resolved]
  - Localised infection [Not Recovered/Not Resolved]
  - Diabetic foot [Recovered/Resolved]
  - Weight decreased [Not Recovered/Not Resolved]
  - Diarrhoea [Not Recovered/Not Resolved]
